FAERS Safety Report 14127934 (Version 2)
Quarter: 2017Q4

REPORT INFORMATION
  Report Type: Spontaneous
  Country: US (occurrence: US)
  Receive Date: 20171026
  Receipt Date: 20171214
  Transmission Date: 20180321
  Serious: No
  Sender: FDA-Public Use
  Company Number: US-PFIZER INC-2017461277

PATIENT
  Age: 72 Year
  Sex: Female

DRUGS (1)
  1. XELJANZ XR [Suspect]
     Active Substance: TOFACITINIB CITRATE
     Dosage: 11 MG, UNK
     Dates: start: 201711

REACTIONS (5)
  - Pain in extremity [Not Recovered/Not Resolved]
  - Periodic limb movement disorder [Unknown]
  - Hypertonic bladder [Unknown]
  - Condition aggravated [Unknown]
  - Drug effect decreased [Not Recovered/Not Resolved]
